FAERS Safety Report 10056264 (Version 2)
Quarter: 2014Q2

REPORT INFORMATION
  Report Type: Spontaneous
  Country: JP (occurrence: JP)
  Receive Date: 20140403
  Receipt Date: 20140410
  Transmission Date: 20141212
  Serious: Yes (Disabling, Other)
  Sender: FDA-Public Use
  Company Number: JP-ABBVIE-14K-087-1219779-00

PATIENT
  Age: 40 Year
  Sex: Female
  Weight: 52 kg

DRUGS (1)
  1. LEUPLIN FOR INJECTION KIT [Suspect]
     Indication: ENDOMETRIOSIS
     Route: 058
     Dates: start: 20140220, end: 20140220

REACTIONS (1)
  - Cerebral infarction [Not Recovered/Not Resolved]
